FAERS Safety Report 10472242 (Version 1)
Quarter: 2014Q3

REPORT INFORMATION
  Report Type: Spontaneous
  Country: US (occurrence: None)
  Receive Date: 20140923
  Receipt Date: 20140923
  Transmission Date: 20150326
  Serious: Yes (Other)
  Sender: FDA-Public Use
  Company Number: None

PATIENT
  Age: 26 Year
  Sex: Male

DRUGS (3)
  1. QUETIAPINE 200 MG (QUETIAPINE) [Suspect]
     Active Substance: QUETIAPINE
     Indication: MOOD ALTERED
  2. PRAZOSIN [Suspect]
     Active Substance: PRAZOSIN
  3. DIVALPROEX ER [Suspect]
     Active Substance: DIVALPROEX SODIUM
     Indication: MOOD ALTERED
     Route: 048
     Dates: start: 20140623, end: 20140630

REACTIONS (4)
  - Neutropenia [None]
  - Hypokalaemia [None]
  - Blood calcium increased [None]
  - Platelet count decreased [None]

NARRATIVE: CASE EVENT DATE: 20140630
